FAERS Safety Report 17870398 (Version 1)
Quarter: 2020Q2

REPORT INFORMATION
  Report Type: Spontaneous
  Country: US (occurrence: US)
  Receive Date: 20200606
  Receipt Date: 20200606
  Transmission Date: 20200714
  Serious: Yes (Disabling)
  Sender: FDA-Public Use
  Company Number: None

PATIENT
  Sex: Female
  Weight: 78.75 kg

DRUGS (2)
  1. PORK THYROID [Concomitant]
  2. NP THYROID [Suspect]
     Active Substance: LEVOTHYROXINE\LIOTHYRONINE
     Indication: HYPERTHYROIDISM
     Dosage: ?
     Dates: start: 20190503, end: 20200201

REACTIONS (4)
  - Weight increased [None]
  - Fatigue [None]
  - Asthenia [None]
  - Alopecia [None]
